FAERS Safety Report 5232845-2 (Version None)
Quarter: 2007Q1

REPORT INFORMATION
  Report Type: 
  Country: None (occurrence: None)
  Receive Date: 20070207
  Receipt Date: 20070125
  Transmission Date: 20070707
  Serious: Yes (Hospitalization)
  Sender: FDA-Public Use
  Company Number: US-JNJFOC-20070107293

PATIENT
  Sex: Female

DRUGS (1)
  1. FENTANYL [Suspect]
     Indication: DRUG ABUSER
     Route: 062

REACTIONS (4)
  - APNOEA [None]
  - DRUG ABUSER [None]
  - INTENTIONAL OVERDOSE [None]
  - UNRESPONSIVE TO STIMULI [None]
